FAERS Safety Report 26195608 (Version 1)
Quarter: 2025Q4

REPORT INFORMATION
  Report Type: Spontaneous
  Country: GB (occurrence: GB)
  Receive Date: 20251224
  Receipt Date: 20251224
  Transmission Date: 20260118
  Serious: Yes (Other)
  Sender: ACCORD
  Company Number: None

PATIENT
  Sex: Male

DRUGS (8)
  1. AZACITIDINE [Suspect]
     Active Substance: AZACITIDINE
     Indication: Product used for unknown indication
     Dosage: INJECTION TO UPPER ARM, THIGH OR ABDOMEN
  2. VENETOCLAX [Suspect]
     Active Substance: VENETOCLAX
     Indication: Product used for unknown indication
     Dosage: TAKE ONE TABLET A DAY FOR 5 DAYS, AS DIRECTED
  3. ONDANSETRON [Concomitant]
     Active Substance: ONDANSETRON
  4. ACYCLOVIR [Concomitant]
     Active Substance: ACYCLOVIR
  5. POSACONAZOLE [Concomitant]
     Active Substance: POSACONAZOLE
  6. FILGRASTIM [Concomitant]
     Active Substance: FILGRASTIM
  7. HYDROCORTISONE [Concomitant]
     Active Substance: HYDROCORTISONE
  8. ALLOPURINOL [Concomitant]
     Active Substance: ALLOPURINOL

REACTIONS (7)
  - Peripheral coldness [Unknown]
  - Condition aggravated [Unknown]
  - Fatigue [Unknown]
  - Diarrhoea [Unknown]
  - Hypoaesthesia [Unknown]
  - Epistaxis [Not Recovered/Not Resolved]
  - Neuropathy peripheral [Unknown]
